FAERS Safety Report 6662365-X (Version None)
Quarter: 2010Q1

REPORT INFORMATION
  Report Type: 
  Country: None (occurrence: None)
  Receive Date: 20100331
  Receipt Date: 20090810
  Transmission Date: 20100710
  Serious: No
  Sender: FDA-Public Use
  Company Number: US-ABBOTT-09P-163-0590697-00

PATIENT
  Sex: Female
  Weight: 81.72 kg

DRUGS (11)
  1. LUPRON DEPOT [Suspect]
     Indication: UTERINE LEIOMYOMA
     Route: 030
     Dates: start: 20090709
  2. DEPO-PROVERA [Suspect]
     Indication: WRONG DRUG ADMINISTERED
     Route: 030
     Dates: start: 20090709, end: 20090709
  3. NORETHINDRONE [Concomitant]
     Indication: DRUG USE FOR UNKNOWN INDICATION
     Dosage: 1/2 PILL QD
     Route: 048
  4. SYNTHROID [Concomitant]
     Indication: AUTOIMMUNE THYROIDITIS
     Route: 048
  5. YELLOW FEVER VACCINE [Concomitant]
     Indication: PROPHYLAXIS
  6. TYPHOID FEVER VACCINE [Concomitant]
     Indication: PROPHYLAXIS
  7. HEPATITIS B VACCINE [Concomitant]
     Indication: PROPHYLAXIS
  8. HEPATITIS A VACCINE [Concomitant]
     Indication: PROPHYLAXIS
  9. TETANUS VACCINE [Concomitant]
     Indication: PROPHYLAXIS
  10. MALARIA MEDICATION [Concomitant]
     Indication: PROPHYLAXIS
     Route: 048
  11. VITAMINS [Concomitant]
     Indication: VITAMIN SUPPLEMENTATION
     Route: 048

REACTIONS (7)
  - CRYING [None]
  - DEPRESSION [None]
  - EMOTIONAL DISTRESS [None]
  - FATIGUE [None]
  - FEELING ABNORMAL [None]
  - HEAT STROKE [None]
  - WRONG DRUG ADMINISTERED [None]
